FAERS Safety Report 5177133-8 (Version None)
Quarter: 2006Q4

REPORT INFORMATION
  Report Type: 
  Country: None (occurrence: None)
  Receive Date: 20061207
  Receipt Date: 20061128
  Transmission Date: 20070319
  Serious: No
  Sender: FDA-Public Use
  Company Number: C-06-0067

PATIENT
  Age: 82 Year
  Sex: Female
  Weight: 68.0396 kg

DRUGS (2)
  1. PAREGORIC, USP (PRODUCT CODE 8457) [Suspect]
     Indication: DIARRHOEA
     Dosage: 1 TSP/DAY ORALLY
     Route: 048
     Dates: start: 20061124, end: 20061130
  2. VITAMINS [Concomitant]

REACTIONS (2)
  - DRUG INEFFECTIVE [None]
  - PHARMACEUTICAL PRODUCT COMPLAINT [None]
